FAERS Safety Report 8852164 (Version 1)
Quarter: 2012Q4

REPORT INFORMATION
  Report Type: 
  Country: KR (occurrence: KR)
  Receive Date: 20121022
  Receipt Date: 20121022
  Transmission Date: 20130627
  Serious: Yes (Other)
  Sender: FDA-Public Use
  Company Number: KR-PFIZER INC-2012255401

PATIENT
  Age: 62 Year
  Sex: Male

DRUGS (2)
  1. VIAGRA [Suspect]
     Dosage: 50 mg, UNK
     Route: 048
  2. VIAGRA [Suspect]
     Dosage: 100 mg or 150 mg (dose increased from 50 mg)
     Route: 048

REACTIONS (2)
  - Incorrect dose administered [Unknown]
  - Visual impairment [Not Recovered/Not Resolved]
